FAERS Safety Report 7573303-X (Version None)
Quarter: 2011Q2

REPORT INFORMATION
  Report Type: 
  Country: None (occurrence: None)
  Receive Date: 20110627
  Receipt Date: 20110614
  Transmission Date: 20111010
  Serious: Yes (Hospitalization, Other)
  Sender: FDA-Public Use
  Company Number: PHHY2011IT53337

PATIENT
  Sex: Male

DRUGS (5)
  1. FELISON [Concomitant]
     Dosage: 30 MG, 1 POSOLOGIC UNIT
  2. TAVOR (FLUCONAZOLE) [Concomitant]
     Dosage: 2.5 MG, 3 POSOLOGIC UNITS
  3. TRILAFON [Concomitant]
     Dosage: 8 MG,  3 POSOLOGIC UNITS
     Route: 048
  4. CLOZAPINE [Suspect]
     Indication: SCHIZOPHRENIA
     Dosage: 25 MG, 4 POSOLOGIC UNITS (FROM 25 MG TO 100 MG)
     Route: 048
     Dates: start: 20110517, end: 20110603
  5. ENTUMIN [Concomitant]
     Dosage: 100 MG/ML, 15 DROPS
     Route: 048

REACTIONS (2)
  - LEFT VENTRICULAR DYSFUNCTION [None]
  - TROPONIN I INCREASED [None]
